FAERS Safety Report 7452310-1 (Version None)
Quarter: 2011Q2

REPORT INFORMATION
  Report Type: 
  Country: None (occurrence: None)
  Receive Date: 20110425
  Receipt Date: 20110412
  Transmission Date: 20111010
  Serious: Yes (Hospitalization, Other)
  Sender: FDA-Public Use
  Company Number: 2011SP016978

PATIENT
  Sex: Female

DRUGS (1)
  1. PEG-INTRON [Suspect]
     Indication: HEPATITIS C
     Dates: start: 20090101

REACTIONS (8)
  - CONFUSIONAL STATE [None]
  - MOUTH HAEMORRHAGE [None]
  - OPEN WOUND [None]
  - TONGUE HAEMORRHAGE [None]
  - AMMONIA INCREASED [None]
  - DRUG INEFFECTIVE [None]
  - PAIN [None]
  - GENERAL PHYSICAL HEALTH DETERIORATION [None]
